FAERS Safety Report 25829420 (Version 1)
Quarter: 2025Q3

REPORT INFORMATION
  Report Type: Spontaneous
  Country: IN (occurrence: IN)
  Receive Date: 20250922
  Receipt Date: 20250922
  Transmission Date: 20251020
  Serious: Yes (Death)
  Sender: ROCHE
  Company Number: IN-ROCHE-10000390649

PATIENT
  Age: 53 Year
  Sex: Male
  Weight: 50 kg

DRUGS (1)
  1. GAZYVA [Suspect]
     Active Substance: OBINUTUZUMAB
     Indication: Burkitt^s leukaemia
     Route: 042
     Dates: start: 20250806

REACTIONS (1)
  - Death [Fatal]
